FAERS Safety Report 12616547 (Version 4)
Quarter: 2018Q4

REPORT INFORMATION
  Report Type: Report from Study
  Country: US (occurrence: US)
  Receive Date: 20160802
  Receipt Date: 20181019
  Transmission Date: 20190204
  Serious: Yes (Death, Hospitalization)
  Sender: FDA-Public Use
  Company Number: US-ACTELION-A-US2016-139322

PATIENT
  Age: 56 Year
  Sex: Female

DRUGS (4)
  1. OPSUMIT [Suspect]
     Active Substance: MACITENTAN
     Indication: PULMONARY ARTERIAL HYPERTENSION
     Dosage: 10 MG, QD
     Route: 048
     Dates: start: 20160701, end: 20160727
  2. TYVASO [Concomitant]
     Active Substance: TREPROSTINIL
  3. REVATIO [Concomitant]
     Active Substance: SILDENAFIL CITRATE
  4. VELETRI [Suspect]
     Active Substance: EPOPROSTENOL
     Indication: PULMONARY ARTERIAL HYPERTENSION
     Dosage: 6 NG/KG, PER MIN
     Route: 042

REACTIONS (12)
  - Hypoxia [Fatal]
  - Drug intolerance [Unknown]
  - Photophobia [Unknown]
  - Nausea [Unknown]
  - Flushing [Unknown]
  - Oxygen saturation decreased [Fatal]
  - Unresponsive to stimuli [Fatal]
  - Ventilation perfusion mismatch [Unknown]
  - Tooth disorder [Unknown]
  - Headache [Unknown]
  - Cardiac arrest [Fatal]
  - Pain in jaw [Unknown]

NARRATIVE: CASE EVENT DATE: 20160707
